FAERS Safety Report 10149711 (Version 1)
Quarter: 2014Q2

REPORT INFORMATION
  Report Type: Spontaneous
  Country: FR (occurrence: FR)
  Receive Date: 20140502
  Receipt Date: 20140502
  Transmission Date: 20141212
  Serious: Yes (Hospitalization)
  Sender: FDA-Public Use
  Company Number: FR-UCBSA-119328

PATIENT
  Age: 69 Year
  Sex: Female

DRUGS (5)
  1. NEUPRO [Suspect]
     Route: 062
     Dates: start: 201403, end: 20140325
  2. PAROXETINE [Concomitant]
     Indication: DEPRESSION
  3. LEVOTHYROX [Concomitant]
     Indication: THYROIDECTOMY
  4. DOMPERIDONE [Concomitant]
     Dosage: 10 MG
     Route: 048
     Dates: end: 201404
  5. MADOPAR [Concomitant]
     Indication: MUSCLE RIGIDITY
     Dosage: 0.5-1-.0.5 (125 MG)
     Dates: start: 201402, end: 201404

REACTIONS (1)
  - Convulsion [Recovered/Resolved]
